FAERS Safety Report 7078807-4 (Version None)
Quarter: 2010Q4

REPORT INFORMATION
  Report Type: 
  Country: None (occurrence: None)
  Receive Date: 20101102
  Receipt Date: 20101026
  Transmission Date: 20110411
  Serious: Yes (Hospitalization)
  Sender: FDA-Public Use
  Company Number: CA-PFIZER INC-2010136004

PATIENT
  Age: 74 Year
  Sex: Male
  Weight: 67 kg

DRUGS (6)
  1. BLINDED *NO SUBJECT DRUG [Suspect]
     Indication: NON-SMALL CELL LUNG CANCER
     Dosage: 25 MG, 1X/DAY
     Route: 048
     Dates: start: 20080925, end: 20101024
  2. PLACEBO [Suspect]
     Indication: NON-SMALL CELL LUNG CANCER
     Dosage: 25 MG, 1X/DAY
     Route: 048
     Dates: start: 20080925, end: 20101024
  3. SUNITINIB MALATE [Suspect]
     Indication: NON-SMALL CELL LUNG CANCER
     Dosage: 25 MG, 1X/DAY
     Route: 048
     Dates: start: 20080925, end: 20101024
  4. ERLOTINIB HYDROCHLORIDE [Suspect]
     Indication: NON-SMALL CELL LUNG CANCER
     Dosage: 100 MG, 1X/DAY
     Route: 048
     Dates: start: 20080925, end: 20101024
  5. IMODIUM [Concomitant]
     Indication: DIARRHOEA
     Dosage: 2 MG, AS NEEDED
     Route: 048
     Dates: start: 20091120
  6. CODEINE [Concomitant]
     Indication: COUGH
     Dosage: 30 MG, AS NEEDED
     Route: 048
     Dates: start: 20090901

REACTIONS (1)
  - ABDOMINAL PAIN UPPER [None]
